FAERS Safety Report 9555060 (Version 1)
Quarter: 2013Q3

REPORT INFORMATION
  Report Type: Spontaneous
  Country: US (occurrence: None)
  Receive Date: 20130724
  Receipt Date: 20130724
  Transmission Date: 20140515
  Serious: No
  Sender: FDA-Public Use
  Company Number: PHEH2013US006122

PATIENT
  Age: 49 Year
  Sex: Female
  Weight: 54.4 kg

DRUGS (12)
  1. GILENYA (FINGOLIMOD) CAPSULE, 0.5MG [Suspect]
     Route: 048
  2. ATENOLOL (ATENOLOL) [Concomitant]
  3. HYDROCHLOROTH (HYDROCHLOROTHIAZIDE) [Concomitant]
  4. OXYBUTYNIN (OXYBUTYNIN) [Concomitant]
  5. AVIANE (ETHINYLESTRADIOL, LEVONORGESTREL) [Concomitant]
  6. SIMVASTATIN (SIMVASTATIN) [Concomitant]
  7. ONE-A-DAY WOMEN^S (ACACIA SENEGAL, ASCORBIC ACID, BETACAROTENE, CALCIUM CARBONATE, CALCIUM PANTOTHENATE, CALCIUM SILICATE, CELLULOSE MICROCRYSTALLINE, COLECALCIFEROL, CROSCARMELLOSE SODIUM, CYANOCOBALAMIN, DEXTRIN, DL-ALPHA TOCOPHERYL ACETATE, FERROUS FUMARATE, FOLIC ACID, GELATIN, GLUCOSE, HYPROMELLOSE, LECITHIN, MACROGOL, MAGNESIUM OXIDE, MAGNESIUM STEARATE, NICOTINAMIDE, PYRIDOXINE HYDROCHLORIDE, RETINOL ACETATE, RIBOFLAVIN, SILICON DIOXIDE, STARCH, THIAMINE MONONITRATE, TITANIUM DIOXIDE, ZIN [Concomitant]
  8. OMEGA 3 FISH (DOCOSAHEXAENOIC ACID, EICOSAPENTAENOIC ACID) [Concomitant]
  9. CALCIUM + VITAMIN D /01483701/ (CALCIUM, COLECALCIFEROL) [Concomitant]
  10. DIVALPROEX (VALPROATE SEMISODIUM) [Concomitant]
  11. VITAMIN D3 (COLECALCIFEROL) [Concomitant]
  12. GABAPENTIN (GABAPENTIN) [Concomitant]

REACTIONS (1)
  - Muscle spasms [None]
